FAERS Safety Report 7338704-3 (Version None)
Quarter: 2011Q1

REPORT INFORMATION
  Report Type: 
  Country: None (occurrence: None)
  Receive Date: 20110308
  Receipt Date: 20110228
  Transmission Date: 20110831
  Serious: Yes (Death)
  Sender: FDA-Public Use
  Company Number: A0916824A

PATIENT
  Sex: Male

DRUGS (1)
  1. SERETIDE [Suspect]
     Route: 055

REACTIONS (1)
  - CARDIAC ARREST [None]
